FAERS Safety Report 4352448-1 (Version None)
Quarter: 2004Q2

REPORT INFORMATION
  Report Type: 
  Country: None (occurrence: None)
  Receive Date: 20040409
  Receipt Date: 20040204
  Transmission Date: 20050107
  Serious: No
  Sender: FDA-Public Use
  Company Number: PHEH2004US01781

PATIENT
  Age: 8 Year
  Sex: Male
  Weight: 24.9 kg

DRUGS (1)
  1. ELIDEL [Suspect]
     Indication: BLEPHARITIS
     Dosage: BID, TOPICAL
     Route: 061
     Dates: start: 20040130, end: 20040131

REACTIONS (3)
  - DERMATITIS CONTACT [None]
  - EYE REDNESS [None]
  - EYE SWELLING [None]
